FAERS Safety Report 24948686 (Version 1)
Quarter: 2025Q1

REPORT INFORMATION
  Report Type: Spontaneous
  Country: IN (occurrence: IN)
  Receive Date: 20250210
  Receipt Date: 20250210
  Transmission Date: 20250409
  Serious: Yes (Other)
  Sender: ACCORD
  Company Number: IN-MLMSERVICE-20250123-PI370966-00306-1

PATIENT
  Age: 32 Year
  Sex: Male

DRUGS (5)
  1. TACROLIMUS [Suspect]
     Active Substance: TACROLIMUS
     Indication: Immunosuppressant drug therapy
     Dosage: MAINTENANCE, THEN REDUCED TO 2.5 MG
     Dates: start: 2023, end: 2023
  2. MYCOPHENOLATE MOFETIL [Concomitant]
     Active Substance: MYCOPHENOLATE MOFETIL
     Indication: Immunosuppressant drug therapy
     Dosage: MAINTENANCE
     Dates: start: 2023
  3. PREDNISOLONE [Concomitant]
     Active Substance: PREDNISOLONE
     Indication: Immunosuppressant drug therapy
     Dates: start: 2023
  4. TACROLIMUS [Suspect]
     Active Substance: TACROLIMUS
     Indication: Immunosuppressant drug therapy
     Dosage: FURTHER REDUCED
     Dates: end: 2024
  5. TACROLIMUS [Suspect]
     Active Substance: TACROLIMUS
     Indication: Immunosuppressant drug therapy
     Dosage: DOSE WAS REDUCED
     Dates: start: 2023

REACTIONS (4)
  - Renal tubular injury [Unknown]
  - Toxicity to various agents [Unknown]
  - Chronic allograft nephropathy [Unknown]
  - Renal transplant failure [Unknown]

NARRATIVE: CASE EVENT DATE: 20230101
